FAERS Safety Report 7406414-X (Version None)
Quarter: 2011Q2

REPORT INFORMATION
  Report Type: 
  Country: None (occurrence: None)
  Receive Date: 20110411
  Receipt Date: 20110329
  Transmission Date: 20111010
  Serious: Yes (Other)
  Sender: FDA-Public Use
  Company Number: PHHY2010US88838

PATIENT
  Sex: Female
  Weight: 93 kg

DRUGS (8)
  1. DIOVAN [Suspect]
     Dosage: 160 MG (2 PER DAY)
     Route: 048
  2. VERAPAMIL [Concomitant]
  3. ATENOLOL [Concomitant]
  4. MONOPRIL [Concomitant]
  5. PLAVIX [Concomitant]
  6. SIMVASTATIN [Concomitant]
  7. HYDROCHLOROTHIAZIDE [Concomitant]
  8. FOSAMAX [Concomitant]

REACTIONS (5)
  - SPEECH DISORDER [None]
  - VIITH NERVE PARALYSIS [None]
  - GAIT DISTURBANCE [None]
  - INFLUENZA LIKE ILLNESS [None]
  - BALANCE DISORDER [None]
